FAERS Safety Report 6492072-8 (Version None)
Quarter: 2009Q4

REPORT INFORMATION
  Report Type: 
  Country: None (occurrence: None)
  Receive Date: 20091125
  Receipt Date: 20090611
  Transmission Date: 20100525
  Serious: Yes (Other)
  Sender: FDA-Public Use
  Company Number: 2009BH009835

PATIENT
  Age: 3 Year
  Sex: Female
  Weight: 13.9 kg

DRUGS (11)
  1. DIANEAL [Suspect]
     Indication: PERITONEAL DIALYSIS
     Dosage: EVERY DAY ; IP
     Route: 033
     Dates: start: 20080130
  2. DIANEAL PD-2 W/ DEXTROSE 1.5% [Suspect]
     Indication: PERITONEAL DIALYSIS
     Dosage: EVERY DAY; IP
     Route: 033
     Dates: start: 20080130
  3. EPOGEN [Concomitant]
  4. KAYEXALATE [Concomitant]
  5. FEOSOL [Concomitant]
  6. TUMS [Concomitant]
  7. RANITIDINE [Concomitant]
  8. CALCITRIOL [Concomitant]
  9. LABETALOL HCL [Concomitant]
  10. AMLODIPINE [Concomitant]
  11. LISINOPRIL [Concomitant]

REACTIONS (1)
  - PERITONITIS BACTERIAL [None]
